FAERS Safety Report 22285154 (Version 4)
Quarter: 2023Q4

REPORT INFORMATION
  Report Type: Spontaneous
  Country: US (occurrence: US)
  Receive Date: 20230504
  Receipt Date: 20231023
  Transmission Date: 20240109
  Serious: Yes (Hospitalization, Other)
  Sender: FDA-Public Use
  Company Number: US-BRISTOL-MYERS SQUIBB COMPANY-2023-062177

PATIENT
  Age: 52 Year
  Sex: Female
  Weight: 113.85 kg

DRUGS (2)
  1. POMALYST [Suspect]
     Active Substance: POMALIDOMIDE
     Indication: Plasma cell myeloma in remission
     Route: 048
     Dates: start: 20230208
  2. POMALYST [Suspect]
     Active Substance: POMALIDOMIDE
     Route: 048
     Dates: start: 20230417

REACTIONS (3)
  - Meningitis [Recovered/Resolved]
  - White blood cell count decreased [Not Recovered/Not Resolved]
  - Respiratory tract infection [Recovered/Resolved]
